FAERS Safety Report 10434497 (Version 1)
Quarter: 2014Q3

REPORT INFORMATION
  Report Type: Spontaneous
  Country: GB (occurrence: GB)
  Receive Date: 20140905
  Receipt Date: 20140905
  Transmission Date: 20150326
  Serious: Yes (Hospitalization, Other)
  Sender: FDA-Public Use
  Company Number: GB-ASTRAZENECA-2014SE65157

PATIENT
  Age: 70 Year
  Sex: Male

DRUGS (15)
  1. BUPRENORPHINE [Concomitant]
     Active Substance: BUPRENORPHINE
  2. PREGABALIN. [Concomitant]
     Active Substance: PREGABALIN
  3. PROPRANOLOL [Concomitant]
     Active Substance: PROPRANOLOL\PROPRANOLOL HYDROCHLORIDE
  4. SALBUTAMOL [Concomitant]
     Active Substance: ALBUTEROL
     Dosage: AS NECESSARY
  5. OMEPRAZOLE. [Concomitant]
     Active Substance: OMEPRAZOLE
  6. BETAHISTINE [Concomitant]
     Active Substance: BETAHISTINE
  7. GTN [Concomitant]
     Active Substance: NITROGLYCERIN
     Dosage: AS NECESSARY
  8. GLICLAZIDE [Concomitant]
     Active Substance: GLICLAZIDE
  9. METFORMIN [Concomitant]
     Active Substance: METFORMIN HYDROCHLORIDE
  10. SIMVASTATIN. [Concomitant]
     Active Substance: SIMVASTATIN
  11. LISINOPRIL. [Suspect]
     Active Substance: LISINOPRIL
     Route: 048
  12. ASPIRIN. [Concomitant]
     Active Substance: ASPIRIN
  13. DIAZEPAM. [Concomitant]
     Active Substance: DIAZEPAM
  14. SITAGLIPTIN [Concomitant]
     Active Substance: SITAGLIPTIN
  15. LISINOPRIL. [Suspect]
     Active Substance: LISINOPRIL
     Route: 048
     Dates: end: 20120727

REACTIONS (5)
  - Vomiting [Unknown]
  - Renal failure acute [Recovered/Resolved]
  - Campylobacter infection [Unknown]
  - Diarrhoea [Unknown]
  - Dehydration [Unknown]

NARRATIVE: CASE EVENT DATE: 20120627
